FAERS Safety Report 11996252 (Version 1)
Quarter: 2016Q1

REPORT INFORMATION
  Report Type: Spontaneous
  Country: US (occurrence: US)
  Receive Date: 20160203
  Receipt Date: 20160203
  Transmission Date: 20160526
  Serious: Yes (Hospitalization)
  Sender: FDA-Public Use
  Company Number: US-TAIHO ONCOLOGY INC-EU-2016-00062

PATIENT
  Age: 65 Year
  Sex: Female
  Weight: 75.82 kg

DRUGS (1)
  1. LONSURF [Suspect]
     Active Substance: TIPIRACIL HYDROCHLORIDE\TRIFLURIDINE
     Indication: COLON CANCER
     Dosage: CYCLE 1
     Route: 048
     Dates: start: 20160107, end: 20160121

REACTIONS (3)
  - Abdominal pain [Unknown]
  - Nausea [Unknown]
  - Thrombosis [Unknown]

NARRATIVE: CASE EVENT DATE: 201601
